FAERS Safety Report 6829316-6 (Version None)
Quarter: 2010Q2

REPORT INFORMATION
  Report Type: 
  Country: None (occurrence: None)
  Receive Date: 20100629
  Receipt Date: 20100615
  Transmission Date: 20101027
  Serious: Yes (Hospitalization)
  Sender: FDA-Public Use
  Company Number: GB-IGSA-IG684

PATIENT
  Age: 62 Year
  Sex: Male
  Weight: 57.1 kg

DRUGS (10)
  1. FLEBOGAMMA 5% DIF [Suspect]
     Indication: IMMUNODEFICIENCY COMMON VARIABLE
     Dosage: 30 G EVERY 3 WEEKS IV (INFUSION RATE 222 ML /H AT ROOM TEMPERATURE)
     Route: 042
     Dates: start: 20060101, end: 20091201
  2. FLEBOGAMMA 5% DIF [Suspect]
     Indication: IMMUNODEFICIENCY COMMON VARIABLE
     Dosage: 30 G EVERY 3 WEEKS IV (INFUSION RATE 222 ML /H AT ROOM TEMPERATURE)
     Route: 042
     Dates: start: 20091201
  3. FLEBOGAMMA 5% DIF [Suspect]
     Indication: IMMUNODEFICIENCY COMMON VARIABLE
     Dosage: 30 G EVERY 3 WEEKS IV (INFUSION RATE 222 ML /H AT ROOM TEMPERATURE)
     Route: 042
     Dates: start: 20100206
  4. FLEBOGAMMA 5% DIF [Suspect]
  5. CREON 10000 (PANCREATIN) [Concomitant]
  6. PREDNISOLONE [Concomitant]
  7. CARBAMAZEPINE [Concomitant]
  8. TRAMADOL [Concomitant]
  9. AMOXICILLIN [Concomitant]
  10. ALENDRONIC ACID [Concomitant]

REACTIONS (2)
  - CEREBROVASCULAR ACCIDENT [None]
  - SYSTOLIC HYPERTENSION [None]
